FAERS Safety Report 8344846-6 (Version None)
Quarter: 2012Q2

REPORT INFORMATION
  Report Type: 
  Country: None (occurrence: None)
  Receive Date: 20120508
  Receipt Date: 20120501
  Transmission Date: 20120825
  Serious: Yes (Other)
  Sender: FDA-Public Use
  Company Number: US-GLAXOSMITHKLINE-A0974014A

PATIENT
  Age: 69 Year
  Sex: Male
  Weight: 97.7 kg

DRUGS (9)
  1. CRESTOR [Concomitant]
  2. PROMACTA [Suspect]
     Indication: IDIOPATHIC THROMBOCYTOPENIC PURPURA
     Dosage: 75MG PER DAY
     Route: 048
     Dates: start: 20120117
  3. METFORMIN [Concomitant]
  4. HYDROCHLOROTHIAZIDE [Concomitant]
  5. PREDNISONE TAB [Concomitant]
  6. DIOVAN [Concomitant]
  7. GLIMEPIRIDE [Concomitant]
  8. ZOLPIDEM [Concomitant]
  9. JANUVIA [Concomitant]

REACTIONS (2)
  - WOUND HAEMORRHAGE [None]
  - HAEMORRHAGE [None]
